FAERS Safety Report 11763992 (Version 1)
Quarter: 2015Q4

REPORT INFORMATION
  Report Type: Spontaneous
  Country: US (occurrence: US)
  Receive Date: 20151120
  Receipt Date: 20151120
  Transmission Date: 20160304
  Serious: No
  Sender: FDA-Public Use
  Company Number: US-ELI_LILLY_AND_COMPANY-US201305000504

PATIENT
  Age: 62 Year
  Sex: Female

DRUGS (1)
  1. FORTEO [Suspect]
     Active Substance: TERIPARATIDE
     Dosage: UNK, UNKNOWN
     Route: 065

REACTIONS (12)
  - Anxiety [Unknown]
  - Back pain [Unknown]
  - Arthralgia [Unknown]
  - Activities of daily living impaired [Unknown]
  - Depressed mood [Unknown]
  - Discomfort [Unknown]
  - Neck pain [Unknown]
  - Multiple fractures [Unknown]
  - Pain [Unknown]
  - Pain in extremity [Unknown]
  - Musculoskeletal stiffness [Unknown]
  - Drug ineffective [Unknown]
